FAERS Safety Report 8107118-0 (Version None)
Quarter: 2012Q1

REPORT INFORMATION
  Report Type: 
  Country: None (occurrence: None)
  Receive Date: 20120202
  Receipt Date: 20120119
  Transmission Date: 20120608
  Serious: Yes (Other)
  Sender: FDA-Public Use
  Company Number: DE-MYLANLABS-2012S1001687

PATIENT
  Age: 41 Year
  Sex: Male

DRUGS (3)
  1. BUPROPION HYDROCHLORIDE [Suspect]
     Indication: DEPRESSION
     Dosage: 300MG (IN EACH ECT SESSION)
     Route: 065
  2. SUCCINYLCHOLINE CHLORIDE [Concomitant]
     Indication: ANAESTHESIA
     Dosage: 150MG
     Route: 065
  3. ETOMIDATE [Concomitant]
     Indication: ANAESTHESIA
     Dosage: 30MG
     Route: 065

REACTIONS (1)
  - STATUS EPILEPTICUS [None]
